FAERS Safety Report 16807809 (Version 1)
Quarter: 2019Q3

REPORT INFORMATION
  Report Type: Spontaneous
  Country: BR (occurrence: BR)
  Receive Date: 20190915
  Receipt Date: 20190915
  Transmission Date: 20191005
  Serious: Yes (Other)
  Sender: FDA-Public Use
  Company Number: PHHY2019BR212485

PATIENT
  Age: 38 Year
  Sex: Male

DRUGS (1)
  1. IMATINIB. [Suspect]
     Active Substance: IMATINIB MESYLATE
     Indication: CHRONIC MYELOID LEUKAEMIA
     Dosage: 400 MG, QD
     Route: 065
     Dates: start: 200607

REACTIONS (12)
  - Diabetes mellitus [Unknown]
  - Weight increased [Unknown]
  - Pruritus [Recovering/Resolving]
  - Toxicity to various agents [Unknown]
  - Rash [Unknown]
  - Dyslipidaemia [Unknown]
  - Asthenia [Unknown]
  - Drug intolerance [Unknown]
  - Gynaecomastia [Unknown]
  - Leukocytosis [Unknown]
  - Fatigue [Unknown]
  - Oedema [Unknown]

NARRATIVE: CASE EVENT DATE: 2017
